FAERS Safety Report 11039745 (Version 1)
Quarter: 2015Q2

REPORT INFORMATION
  Report Type: Spontaneous
  Country: US (occurrence: US)
  Receive Date: 20150416
  Receipt Date: 20150416
  Transmission Date: 20150821
  Serious: No
  Sender: FDA-Public Use
  Company Number: US-MYLANLABS-2014M1014520

PATIENT
  Sex: Female

DRUGS (1)
  1. LEVALBUTEROL INHALATION SOLUTION USP (CONCENTRATE), 1.25 MG (0.25%) [Suspect]
     Active Substance: LEVALBUTEROL
     Dosage: 1.25 MG/0.5ML, PRN
     Route: 055
     Dates: start: 201404

REACTIONS (2)
  - Wrong technique in drug usage process [Not Recovered/Not Resolved]
  - No adverse event [Not Recovered/Not Resolved]

NARRATIVE: CASE EVENT DATE: 201404
